FAERS Safety Report 17635555 (Version 1)
Quarter: 2020Q2

REPORT INFORMATION
  Report Type: Spontaneous
  Country: US (occurrence: US)
  Receive Date: 20200406
  Receipt Date: 20200406
  Transmission Date: 20200713
  Serious: No
  Sender: FDA-Public Use
  Company Number: US-GILEAD-2020-0457346

PATIENT
  Age: 51 Year
  Sex: Male
  Weight: 98 kg

DRUGS (4)
  1. TADALAFIL. [Suspect]
     Active Substance: TADALAFIL
     Indication: PRODUCT USED FOR UNKNOWN INDICATION
     Route: 065
  2. REMODULIN [Suspect]
     Active Substance: TREPROSTINIL
     Indication: PULMONARY ARTERIAL HYPERTENSION
     Dosage: 0.098 UG/KG, Q1MINUTE
     Route: 058
     Dates: start: 20170111
  3. LETAIRIS [Concomitant]
     Active Substance: AMBRISENTAN
  4. AMBRISENTAN [Suspect]
     Active Substance: AMBRISENTAN
     Indication: PULMONARY ARTERIAL HYPERTENSION
     Route: 065

REACTIONS (4)
  - Dizziness exertional [Unknown]
  - Epistaxis [Unknown]
  - Nasal congestion [Unknown]
  - Dyspnoea [Unknown]
